FAERS Safety Report 9475621 (Version 3)
Quarter: 2013Q4

REPORT INFORMATION
  Report Type: Spontaneous
  Country: FR (occurrence: FR)
  Receive Date: 20130826
  Receipt Date: 20131104
  Transmission Date: 20140711
  Serious: Yes (Hospitalization, Other)
  Sender: FDA-Public Use
  Company Number: PHHY2013FR091501

PATIENT
  Sex: Male

DRUGS (11)
  1. LEPONEX [Suspect]
     Indication: PARKINSON^S DISEASE
     Dosage: 25 MG, QD
     Route: 048
     Dates: start: 20130412, end: 20130805
  2. LEPONEX [Suspect]
     Indication: DEMENTIA
     Dosage: 12.5 MG, QD
  3. XATRAL [Concomitant]
     Dosage: 10 MG, QD
  4. INEXIUM//ESOMEPRAZOLE SODIUM [Concomitant]
     Dosage: 40 MG, QD
  5. DAFALGAN [Concomitant]
     Dosage: 500 MG, (6 DF QD)
  6. SINEMET LP [Concomitant]
     Dosage: 4 DF, QD (200 MG/50 MG)
  7. SINEMET LP [Concomitant]
     Dosage: 2 DF, QD (100 MG/25 MG)
  8. KARDEGIC [Concomitant]
     Dosage: 75 MG, QD (1 DF)
  9. ATHYMIL [Concomitant]
     Dosage: 10 MG, QD
  10. GUTRON [Concomitant]
     Dosage: 6 DF, QD
  11. DUROGESIC [Concomitant]
     Dosage: 1 DF, (EVERY 72 HOURS)

REACTIONS (6)
  - Lung disorder [Recovered/Resolved]
  - Urinary tract infection [Recovered/Resolved]
  - Leukocytosis [Recovered/Resolved]
  - Enterobacter infection [Unknown]
  - Leukocyturia [Unknown]
  - Infection [Unknown]
